FAERS Safety Report 22531448 (Version 1)
Quarter: 2023Q2

REPORT INFORMATION
  Report Type: Spontaneous
  Country: ZA (occurrence: ZA)
  Receive Date: 20230607
  Receipt Date: 20230607
  Transmission Date: 20230721
  Serious: Yes (Hospitalization, Other)
  Sender: FDA-Public Use
  Company Number: ZA-NAPPMUNDI-GBR-2023-0108268

PATIENT
  Age: 40 Year
  Sex: Female

DRUGS (2)
  1. OXYCODONE HYDROCHLORIDE [Suspect]
     Active Substance: OXYCODONE HYDROCHLORIDE
     Indication: Postoperative analgesia
     Dosage: UNK EVERY 4-6 HOURS NOT AS NEEDED
     Route: 065
  2. NALOXONE HYDROCHLORIDE\OXYCODONE HYDROCHLORIDE [Suspect]
     Active Substance: NALOXONE HYDROCHLORIDE\OXYCODONE HYDROCHLORIDE
     Indication: Postoperative analgesia
     Dosage: UNK, BID
     Route: 065

REACTIONS (4)
  - Vestibular neuronitis [Unknown]
  - Nystagmus [Unknown]
  - Vertigo [Unknown]
  - Dizziness [Unknown]
